FAERS Safety Report 10075787 (Version 1)
Quarter: 2014Q2

REPORT INFORMATION
  Report Type: Spontaneous
  Country: US (occurrence: US)
  Receive Date: 20140414
  Receipt Date: 20140414
  Transmission Date: 20141212
  Serious: Yes (Hospitalization, Other)
  Sender: FDA-Public Use
  Company Number: US-ELI_LILLY_AND_COMPANY-US201404000366

PATIENT
  Sex: Female

DRUGS (5)
  1. HUMALOG LISPRO [Suspect]
     Indication: DIABETES MELLITUS
     Dosage: UNK, TID
     Route: 065
  2. LANTUS [Concomitant]
     Dosage: 30 U, EACH EVENING
  3. LANTUS [Concomitant]
     Dosage: 13 U, EACH EVENING
  4. CALCIUM [Concomitant]
  5. VITAMIN D [Concomitant]

REACTIONS (3)
  - Fall [Unknown]
  - Hip fracture [Unknown]
  - Upper limb fracture [Unknown]
